FAERS Safety Report 11777568 (Version 1)
Quarter: 2015Q4

REPORT INFORMATION
  Report Type: Spontaneous
  Country: CH (occurrence: CH)
  Receive Date: 20151125
  Receipt Date: 20151125
  Transmission Date: 20160304
  Serious: Yes (Hospitalization)
  Sender: FDA-Public Use
  Company Number: CH-TEVA-611857ISR

PATIENT
  Age: 40 Year
  Sex: Female
  Weight: 65 kg

DRUGS (6)
  1. ENDOXAN [Concomitant]
     Active Substance: CYCLOPHOSPHAMIDE
     Route: 042
     Dates: start: 20151020
  2. ETOPOPHOS [Concomitant]
     Active Substance: ETOPOSIDE PHOSPHATE
     Route: 042
     Dates: start: 20151020
  3. NOPIL FORTE [Suspect]
     Active Substance: SULFAMETHOXAZOLE\TRIMETHOPRIM
     Dosage: NOPIL FORTE: 1 TABLET EACH ON 21OCT2015 AND 23OCT2015
     Route: 048
     Dates: start: 20151021, end: 20151023
  4. ADRIBLASTIN [Concomitant]
     Active Substance: DOXORUBICIN HYDROCHLORIDE
     Route: 042
     Dates: start: 20151020
  5. NEULASTA [Suspect]
     Active Substance: PEGFILGRASTIM
     Indication: NEUTROPENIA
     Route: 058
     Dates: start: 20151023
  6. NATULAN [Concomitant]
     Active Substance: PROCARBAZINE HYDROCHLORIDE
     Route: 048
     Dates: start: 20151020

REACTIONS (5)
  - Rash [Recovering/Resolving]
  - Lip swelling [Recovering/Resolving]
  - Pruritus [Recovering/Resolving]
  - Muscle tightness [Recovering/Resolving]
  - Dysphonia [Recovering/Resolving]

NARRATIVE: CASE EVENT DATE: 20151023
